FAERS Safety Report 19024866 (Version 2)
Quarter: 2021Q2

REPORT INFORMATION
  Report Type: Spontaneous
  Country: US (occurrence: US)
  Receive Date: 20210318
  Receipt Date: 20210414
  Transmission Date: 20210717
  Serious: No
  Sender: FDA-Public Use
  Company Number: US-ASTRAZENECA-2021A084415

PATIENT
  Sex: Female
  Weight: 90.7 kg

DRUGS (2)
  1. SYMBICORT [Suspect]
     Active Substance: BUDESONIDE\FORMOTEROL FUMARATE DIHYDRATE
     Indication: ASTHMA
     Dosage: 2 PUFFS TWO TIMES A DAY
     Route: 055
     Dates: start: 2008
  2. SYMBICORT [Suspect]
     Active Substance: BUDESONIDE\FORMOTEROL FUMARATE DIHYDRATE
     Indication: ASTHMA
     Dosage: 1 PUFF TWO TIMES A DAY
     Route: 055

REACTIONS (9)
  - Product use issue [Unknown]
  - Drug delivery system malfunction [Unknown]
  - Device malfunction [Unknown]
  - Oral pain [Recovered/Resolved]
  - Dry throat [Not Recovered/Not Resolved]
  - Throat irritation [Unknown]
  - Diabetes mellitus [Unknown]
  - Oropharyngeal blistering [Recovered/Resolved]
  - Oral mucosal blistering [Recovered/Resolved]
